FAERS Safety Report 9466108 (Version 1)
Quarter: 2013Q3

REPORT INFORMATION
  Report Type: Report from Study
  Country: US (occurrence: US)
  Receive Date: 20130820
  Receipt Date: 20130820
  Transmission Date: 20140515
  Serious: No
  Sender: FDA-Public Use
  Company Number: PHEH2013US017540

PATIENT
  Age: 49 Year
  Sex: Female

DRUGS (13)
  1. TASIGNA [Suspect]
     Indication: CHRONIC MYELOID LEUKAEMIA
     Dosage: 400 MG, BID
     Route: 048
     Dates: start: 20130101
  2. MELATONIN [Concomitant]
  3. PHOSPHATIDYL SERINE [Concomitant]
  4. ESCITALOPRAM [Concomitant]
  5. ALBUTEROL [Concomitant]
  6. SUMATRIPTAN [Concomitant]
  7. LYRICA [Concomitant]
  8. NORCO [Concomitant]
  9. SIMVASTATIN [Concomitant]
  10. LEVOTHROID [Concomitant]
  11. FENTANYL [Concomitant]
  12. PROCHLORPERAZINE [Concomitant]
  13. ZOFRAN [Concomitant]

REACTIONS (1)
  - Nausea [Unknown]
